FAERS Safety Report 5588207-1 (Version None)
Quarter: 2008Q1

REPORT INFORMATION
  Report Type: 
  Country: None (occurrence: None)
  Receive Date: 20080108
  Receipt Date: 20071217
  Transmission Date: 20080703
  Serious: Yes (Hospitalization)
  Sender: FDA-Public Use
  Company Number: 6039924

PATIENT
  Age: 50 Year
  Sex: Male

DRUGS (4)
  1. BISOPROLOL FUMARATE [Suspect]
     Indication: CARDIAC FAILURE CHRONIC
     Dosage: 1,25 MG (1,25 MG, 1 IN 1 D) ORAL
     Route: 048
     Dates: start: 20060101, end: 20070728
  2. CORDARONE [Suspect]
     Indication: CARDIAC FAILURE CHRONIC
     Dosage: 200 MG (200  MG, 1 IN 1 D) ORAL
     Route: 048
     Dates: start: 20060101, end: 20070728
  3. RAMIPRIL [Suspect]
     Indication: HYPERTENSION
     Dosage: 2,5 MG (2,5 MG, 1 IN 1 D) ORAL
     Route: 048
     Dates: start: 20060101, end: 20070728
  4. ASPIRIN [Concomitant]

REACTIONS (9)
  - ABDOMINAL PAIN UPPER [None]
  - ARRHYTHMIA [None]
  - CERULOPLASMIN INCREASED [None]
  - CHOLECYSTITIS CHRONIC [None]
  - CHOLESTASIS [None]
  - HEPATITIS TOXIC [None]
  - HYPERTENSION [None]
  - HYPERTHYROIDISM [None]
  - RESPIRATORY DISORDER [None]
